FAERS Safety Report 10586443 (Version 1)
Quarter: 2014Q4

REPORT INFORMATION
  Report Type: Spontaneous
  Country: US (occurrence: None)
  Receive Date: 20141114
  Receipt Date: 20141114
  Transmission Date: 20150529
  Serious: Yes (Life-Threatening, Hospitalization, Disabling, Other)
  Sender: FDA-Public Use
  Company Number: None

PATIENT
  Age: 49 Year
  Sex: Female
  Weight: 2.36 kg

DRUGS (1)
  1. RISPERIDONE. [Suspect]
     Active Substance: RISPERIDONE
     Indication: DEPRESSION
     Route: 048

REACTIONS (15)
  - Emotional disorder [None]
  - Panic attack [None]
  - General physical health deterioration [None]
  - Depression [None]
  - Quality of life decreased [None]
  - Malaise [None]
  - Feeling abnormal [None]
  - Thrombosis [None]
  - Pulmonary thrombosis [None]
  - Dyskinesia [None]
  - Agitation [None]
  - Suicide attempt [None]
  - Impaired work ability [None]
  - Akathisia [None]
  - Social problem [None]

NARRATIVE: CASE EVENT DATE: 20131110
